FAERS Safety Report 14775864 (Version 1)
Quarter: 2018Q2

REPORT INFORMATION
  Report Type: Spontaneous
  Country: GT (occurrence: GT)
  Receive Date: 20180418
  Receipt Date: 20180418
  Transmission Date: 20180711
  Serious: Yes (Other)
  Sender: FDA-Public Use
  Company Number: PHHY2018GT066282

PATIENT

DRUGS (3)
  1. EXFORGE HCT [Suspect]
     Active Substance: AMLODIPINE BESYLATE\HYDROCHLOROTHIAZIDE\VALSARTAN
     Indication: PRODUCT USED FOR UNKNOWN INDICATION
     Dosage: 0.5 DF (10/320/25), QD
     Route: 065
  2. GABEX [Concomitant]
     Indication: PROPHYLAXIS
     Dosage: UNK
     Route: 065
  3. VYMADA [Suspect]
     Active Substance: SACUBITRIL\VALSARTAN
     Indication: PRODUCT USED FOR UNKNOWN INDICATION
     Dosage: 100 MG, Q12H
     Route: 065

REACTIONS (4)
  - Headache [Unknown]
  - Hypertension [Unknown]
  - Incorrect dose administered [Unknown]
  - Hypertrophic cardiomyopathy [Unknown]
